FAERS Safety Report 8306565-1 (Version None)
Quarter: 2012Q1

REPORT INFORMATION
  Report Type: 
  Country: None (occurrence: None)
  Receive Date: 20120326
  Receipt Date: 20110606
  Transmission Date: 20120608
  Serious: Yes (Other)
  Sender: FDA-Public Use
  Company Number: PHHY2011US18314

PATIENT
  Age: 65 Year
  Sex: Male

DRUGS (2)
  1. HYDREA [Concomitant]
  2. TASIGNA [Suspect]
     Indication: CHRONIC MYELOID LEUKAEMIA
     Dosage: 400 MG, BID, ORAL
     Route: 048
     Dates: start: 20101203

REACTIONS (4)
  - SKIN PAPILLOMA [None]
  - SKIN DISORDER [None]
  - ALOPECIA [None]
  - THROMBOCYTOSIS [None]
